FAERS Safety Report 14974835 (Version 1)
Quarter: 2018Q2

REPORT INFORMATION
  Report Type: Spontaneous
  Country: US (occurrence: US)
  Receive Date: 20180605
  Receipt Date: 20180605
  Transmission Date: 20180711
  Serious: No
  Sender: FDA-Public Use
  Company Number: US-SHIRE-US201820893

PATIENT
  Sex: Female
  Weight: 91.16 kg

DRUGS (2)
  1. XIIDRA [Suspect]
     Active Substance: LIFITEGRAST
     Indication: DRY EYE
     Dosage: ONE DROP IN LEFT EYE TWICE DAILY
     Route: 047
     Dates: start: 2017
  2. TRAVATAN [Concomitant]
     Active Substance: TRAVOPROST
     Indication: GLAUCOMA
     Dosage: UNK

REACTIONS (2)
  - Dry eye [Unknown]
  - Off label use [Unknown]
